FAERS Safety Report 24463537 (Version 4)
Quarter: 2025Q3

REPORT INFORMATION
  Report Type: Spontaneous
  Country: JP (occurrence: JP)
  Receive Date: 20241018
  Receipt Date: 20250901
  Transmission Date: 20251020
  Serious: Yes (Hospitalization, Other)
  Sender: BRISTOL-MYERS SQUIBB COMPANY
  Company Number: JP-BRISTOL-MYERS SQUIBB COMPANY-2024-160798

PATIENT
  Age: 45 Year
  Sex: Female

DRUGS (2)
  1. YERVOY [Suspect]
     Active Substance: IPILIMUMAB
     Indication: Malignant melanoma
     Route: 041
     Dates: start: 20240625
  2. OPDIVO [Suspect]
     Active Substance: NIVOLUMAB
     Indication: Malignant melanoma
     Route: 041
     Dates: start: 20240625

REACTIONS (5)
  - Immune-mediated enterocolitis [Recovering/Resolving]
  - Immune-mediated hepatic disorder [Recovering/Resolving]
  - Necrosis [Unknown]
  - Pleural effusion [Unknown]
  - Malignant neoplasm progression [Unknown]

NARRATIVE: CASE EVENT DATE: 20240716
